FAERS Safety Report 18350506 (Version 1)
Quarter: 2020Q4

REPORT INFORMATION
  Report Type: Report from Study
  Country: CO (occurrence: CO)
  Receive Date: 20201006
  Receipt Date: 20201006
  Transmission Date: 20210114
  Serious: Yes (Life-Threatening, Hospitalization)
  Sender: FDA-Public Use
  Company Number: NVSC2020CO056920

PATIENT
  Sex: Male
  Weight: 73 kg

DRUGS (5)
  1. ERYTHROPOIETIN [Concomitant]
     Active Substance: ERYTHROPOIETIN
     Indication: APLASTIC ANAEMIA
     Dosage: MONDAYS, WEDNESDAYS AND FRIDAYS
     Route: 058
  2. REVOLADE [Suspect]
     Active Substance: ELTROMBOPAG
     Indication: APLASTIC ANAEMIA
     Dosage: 50 MG, Q12H (STARTED 4 YEARS AGO)
     Route: 048
  3. DANAZOL. [Suspect]
     Active Substance: DANAZOL
     Indication: APLASTIC ANAEMIA
     Dosage: 200 MG, Q8H
     Route: 048
  4. CYCLOSPORINE. [Suspect]
     Active Substance: CYCLOSPORINE
     Indication: APLASTIC ANAEMIA
     Dosage: 100 MG, Q8H
     Route: 048
  5. LOSARTAN. [Suspect]
     Active Substance: LOSARTAN
     Indication: HYPERTENSION
     Dosage: 50 MG, Q12H
     Route: 048

REACTIONS (3)
  - Inappropriate schedule of product administration [Unknown]
  - Platelet count decreased [Recovering/Resolving]
  - Feeling abnormal [Recovered/Resolved]
